FAERS Safety Report 5139762-7 (Version None)
Quarter: 2006Q4

REPORT INFORMATION
  Report Type: 
  Country: None (occurrence: None)
  Receive Date: 20061023
  Receipt Date: 20061009
  Transmission Date: 20070319
  Serious: Yes (Other)
  Sender: FDA-Public Use
  Company Number: GB200608004497

PATIENT
  Age: 65 Year
  Sex: Female
  Weight: 40 kg

DRUGS (14)
  1. FORTEO [Suspect]
     Indication: OSTEOPOROSIS
     Dosage: 20 UG, DAILY (1/D), SUBCUTANEOUS
     Route: 058
     Dates: start: 20060621, end: 20060905
  2. FORTEO [Concomitant]
  3. PREDNISOLONE [Concomitant]
  4. MESTINON / CAN/ (PYRIDOSTIGMINE BROMIDE) [Concomitant]
  5. WARFARIN SODIUM [Concomitant]
  6. CO-BENELDOPA (BENSERAZIDE HYDROCHLORIDE, LEVODOPA) [Concomitant]
  7. TRAMADOL HCL [Concomitant]
  8. ACETAMINOPHEN [Concomitant]
  9. FUROSEMIDE [Concomitant]
  10. ATORVASTATIN CALCIUM [Concomitant]
  11. FELODIPINE [Concomitant]
  12. PANTOPRAZOLE SODIUM [Concomitant]
  13. ISOSORBIDE MONONITRATE [Concomitant]
  14. CALCHICHEW-D3 (CALCIUM CARBONATE, COLECALCIFEROL) [Concomitant]

REACTIONS (4)
  - BONE PAIN [None]
  - FATIGUE [None]
  - NAUSEA [None]
  - POLLAKIURIA [None]
